FAERS Safety Report 8030765-1 (Version None)
Quarter: 2012Q1

REPORT INFORMATION
  Report Type: 
  Country: None (occurrence: None)
  Receive Date: 20120109
  Receipt Date: 20120106
  Transmission Date: 20120608
  Serious: Yes (Death, Other)
  Sender: FDA-Public Use
  Company Number: PHEH2009US02004

PATIENT
  Sex: Female

DRUGS (14)
  1. BISPHOSPHONATES [Concomitant]
     Dates: start: 20060214
  2. ACTONEL [Concomitant]
  3. IBUPROFEN [Concomitant]
     Dosage: 600 MG, TID
  4. EXEMESTANE [Concomitant]
  5. CALCIUM ACETATE [Concomitant]
  6. TAXOL [Concomitant]
  7. ZOMETA [Suspect]
     Indication: NEOPLASM MALIGNANT
     Dosage: 4 MG, QMO
  8. FASLODEX [Concomitant]
  9. ATIVAN [Concomitant]
  10. OXYCODONE HCL [Concomitant]
  11. ADRIAMYCIN PFS [Concomitant]
  12. AVASTIN [Concomitant]
  13. ZANTAC [Concomitant]
  14. TAMOXIFEN CITRATE [Concomitant]

REACTIONS (37)
  - DEATH [None]
  - OSTEONECROSIS OF JAW [None]
  - DEFORMITY [None]
  - MALAISE [None]
  - INTERVERTEBRAL DISC PROTRUSION [None]
  - METASTASES TO LIVER [None]
  - INTERVERTEBRAL DISC DEGENERATION [None]
  - LUNG HYPERINFLATION [None]
  - GASTROOESOPHAGEAL REFLUX DISEASE [None]
  - DISCOMFORT [None]
  - PLEURAL EFFUSION [None]
  - BRAIN MASS [None]
  - FISTULA DISCHARGE [None]
  - ARTHRALGIA [None]
  - DIARRHOEA [None]
  - METASTASES TO BONE [None]
  - GINGIVAL SWELLING [None]
  - FLANK PAIN [None]
  - JOINT SWELLING [None]
  - DEEP VEIN THROMBOSIS [None]
  - IMPAIRED HEALING [None]
  - BACK PAIN [None]
  - INTERVERTEBRAL DISC SPACE NARROWING [None]
  - HEPATIC LESION [None]
  - BONE LESION [None]
  - LYMPHADENOPATHY MEDIASTINAL [None]
  - ATELECTASIS [None]
  - ABSCESS ORAL [None]
  - NAUSEA [None]
  - SPONDYLOLISTHESIS [None]
  - PAIN IN JAW [None]
  - ENDOMETRIAL HYPERTROPHY [None]
  - LYMPHADENOPATHY [None]
  - METASTASES TO LUNG [None]
  - IMMUNODEFICIENCY [None]
  - DYSPHAGIA [None]
  - ANXIETY [None]
